FAERS Safety Report 4753056-0 (Version None)
Quarter: 2005Q3

REPORT INFORMATION
  Report Type: 
  Country: None (occurrence: None)
  Receive Date: 20050826
  Receipt Date: 20050512
  Transmission Date: 20060218
  Serious: Yes (Hospitalization, Disabling)
  Sender: FDA-Public Use
  Company Number: US-MERCK-0505USA01670

PATIENT
  Age: 53 Year
  Sex: Male
  Weight: 77 kg

DRUGS (8)
  1. VIOXX [Suspect]
     Indication: BACK PAIN
     Route: 048
     Dates: start: 20010924, end: 20040801
  2. VIOXX [Suspect]
     Route: 048
  3. VIOXX [Suspect]
     Route: 048
     Dates: start: 20010901, end: 20040801
  4. VIOXX [Suspect]
     Indication: NECK PAIN
     Route: 048
     Dates: start: 20010924, end: 20040801
  5. VIOXX [Suspect]
     Route: 048
  6. VIOXX [Suspect]
     Route: 048
     Dates: start: 20010901, end: 20040801
  7. SKELAXIN [Concomitant]
     Indication: MUSCLE SPASMS
     Route: 065
     Dates: start: 20010924, end: 20010927
  8. SKELAXIN [Concomitant]
     Route: 065
     Dates: start: 20010901

REACTIONS (11)
  - ANGINA UNSTABLE [None]
  - ANXIETY [None]
  - ARTERIOSCLEROSIS [None]
  - ATELECTASIS [None]
  - BLOOD AMYLASE INCREASED [None]
  - EPIGASTRIC DISCOMFORT [None]
  - HYPERTENSION [None]
  - LIPASE INCREASED [None]
  - MYOCARDIAL INFARCTION [None]
  - NON-CARDIAC CHEST PAIN [None]
  - RENAL CYST [None]
